FAERS Safety Report 8339259-7 (Version None)
Quarter: 2012Q2

REPORT INFORMATION
  Report Type: 
  Country: None (occurrence: None)
  Receive Date: 20120502
  Receipt Date: 20120420
  Transmission Date: 20120825
  Serious: Yes (Other)
  Sender: FDA-Public Use
  Company Number: FK201201199

PATIENT
  Age: 65 Year
  Sex: Female

DRUGS (1)
  1. ROCURONIUM BROMIDE [Suspect]
     Indication: INDUCTION OF ANAESTHESIA
     Dosage: INTRAVENOUS (NOT OTHERWISE SPECIFIED)
     Route: 042
     Dates: start: 20111011, end: 20111011

REACTIONS (2)
  - CARDIAC OUTPUT DECREASED [None]
  - ANAPHYLACTIC SHOCK [None]
